FAERS Safety Report 5773288-2 (Version None)
Quarter: 2008Q2

REPORT INFORMATION
  Report Type: 
  Country: None (occurrence: None)
  Receive Date: 20080613
  Receipt Date: 20080613
  Transmission Date: 20081010
  Serious: Yes (Other)
  Sender: FDA-Public Use
  Company Number: None

PATIENT
  Age: 37 Year
  Sex: Male
  Weight: 99.7913 kg

DRUGS (1)
  1. CEPHALEXIN [Suspect]
     Indication: GINGIVAL INFECTION
     Dosage: 4  4 TIMES A DAY PO
     Route: 048
     Dates: start: 20080528, end: 20080612

REACTIONS (1)
  - RASH [None]
